FAERS Safety Report 25240990 (Version 1)
Quarter: 2025Q2

REPORT INFORMATION
  Report Type: Spontaneous
  Country: CN (occurrence: CN)
  Receive Date: 20250425
  Receipt Date: 20250425
  Transmission Date: 20250717
  Serious: Yes (Life-Threatening, Hospitalization, Other)
  Sender: PFIZER
  Company Number: CN-PFIZER INC-PV202500048833

PATIENT
  Age: 59 Year
  Sex: Female
  Weight: 44 kg

DRUGS (3)
  1. CYTARABINE [Suspect]
     Active Substance: CYTARABINE
     Indication: Chronic myelomonocytic leukaemia
     Dosage: 100 MG, 1X/DAY
     Route: 041
     Dates: start: 20250327, end: 20250331
  2. CYTARABINE [Suspect]
     Active Substance: CYTARABINE
     Indication: Acute leukaemia
  3. CYTARABINE [Suspect]
     Active Substance: CYTARABINE
     Indication: Acute myeloid leukaemia

REACTIONS (11)
  - White blood cell count decreased [Not Recovered/Not Resolved]
  - Platelet count decreased [Unknown]
  - Neutrophil count decreased [Not Recovered/Not Resolved]
  - Mental status changes [Recovering/Resolving]
  - Poor quality sleep [Recovering/Resolving]
  - Decreased appetite [Unknown]
  - Nausea [Unknown]
  - Vomiting [Unknown]
  - Mental fatigue [Recovering/Resolving]
  - Petechiae [Unknown]
  - Pyrexia [Not Recovered/Not Resolved]

NARRATIVE: CASE EVENT DATE: 20250101
